FAERS Safety Report 8673375 (Version 2)
Quarter: 2013Q2

REPORT INFORMATION
  Report Type: Spontaneous
  Country: DE (occurrence: DE)
  Receive Date: 20120719
  Receipt Date: 20130409
  Transmission Date: 20140414
  Serious: Yes (Death)
  Sender: FDA-Public Use
  Company Number: DE-ALEXION-A201201341

PATIENT
  Sex: Female

DRUGS (7)
  1. SOLIRIS 300MG [Suspect]
     Indication: PAROXYSMAL NOCTURNAL HAEMOGLOBINURIA
     Dosage: UNK UNK, Q2W
     Route: 042
     Dates: start: 20080401, end: 20120623
  2. RESTEX [Concomitant]
     Dosage: 25 MG/100 MG
  3. RENAGEL [Concomitant]
     Dosage: 800 MG, UNK
  4. ASS [Concomitant]
  5. DIMETICON [Concomitant]
  6. PANTOPRAZOLE [Concomitant]
  7. BUPRENORPHINE [Concomitant]

REACTIONS (4)
  - Sepsis [Fatal]
  - Intestinal ischaemia [Fatal]
  - Shock [Fatal]
  - Cardiovascular insufficiency [Fatal]
